FAERS Safety Report 5169836-6 (Version None)
Quarter: 2006Q4

REPORT INFORMATION
  Report Type: 
  Country: None (occurrence: None)
  Receive Date: 20061212
  Receipt Date: 20061129
  Transmission Date: 20070319
  Serious: Yes (Hospitalization, Other)
  Sender: FDA-Public Use
  Company Number: DE-JNJFOC-20061106455

PATIENT
  Sex: Female

DRUGS (8)
  1. REMICADE [Suspect]
     Indication: RHEUMATOID ARTHRITIS
     Route: 042
  2. ARAVA [Concomitant]
     Route: 065
  3. PRENI H [Concomitant]
     Route: 065
  4. EUTHROX [Concomitant]
     Route: 065
  5. ATENOLOL [Concomitant]
     Route: 048
  6. CALCIMAG D3 [Concomitant]
     Route: 065
  7. NEXIUM [Concomitant]
     Route: 048
  8. HYDROXYCHLOROQUIN [Concomitant]
     Route: 065

REACTIONS (4)
  - AMYLOIDOSIS [None]
  - CEREBRAL HAEMORRHAGE [None]
  - HYPERTENSIVE CRISIS [None]
  - TRANSAMINASES INCREASED [None]
